FAERS Safety Report 7460955-8 (Version None)
Quarter: 2011Q2

REPORT INFORMATION
  Report Type: 
  Country: None (occurrence: None)
  Receive Date: 20110505
  Receipt Date: 20101222
  Transmission Date: 20111010
  Serious: No
  Sender: FDA-Public Use
  Company Number: US-BAYER-2011-011461

PATIENT
  Age: 21 Year
  Sex: Female
  Weight: 72.562 kg

DRUGS (2)
  1. ALEVE (CAPLET) [Suspect]
     Indication: HEADACHE
  2. ALEVE (CAPLET) [Suspect]
     Indication: DYSMENORRHOEA
     Dosage: 5 DF, ONCE, BOTTLE COUNT 100S
     Route: 048
     Dates: start: 20101222

REACTIONS (3)
  - DYSMENORRHOEA [None]
  - NO ADVERSE EVENT [None]
  - HEADACHE [None]
